FAERS Safety Report 4356053-2 (Version None)
Quarter: 2004Q2

REPORT INFORMATION
  Report Type: 
  Country: None (occurrence: None)
  Receive Date: 20040511
  Receipt Date: 20040407
  Transmission Date: 20050107
  Serious: Yes (Life-Threatening, Hospitalization)
  Sender: FDA-Public Use
  Company Number: PT-BRISTOL-MYERS SQUIBB COMPANY-12554606

PATIENT
  Age: 47 Year
  Sex: Female

DRUGS (7)
  1. TAXOL [Suspect]
     Indication: OVARIAN CANCER
     Dosage: OVER 3 HOURS ^47^
     Route: 042
     Dates: start: 20040223, end: 20040223
  2. CARBOPLATIN [Concomitant]
     Dosage: 300 MG/M2
     Route: 042
  3. RANITIDINE [Concomitant]
     Indication: PREMEDICATION
     Route: 040
  4. DEXAMETHASONE [Concomitant]
     Indication: PREMEDICATION
     Route: 040
  5. GRANISETRON [Concomitant]
     Indication: PREMEDICATION
  6. DEXTROSE 5% [Concomitant]
  7. CLEMASTINE [Concomitant]
     Route: 040

REACTIONS (2)
  - ANAPHYLACTIC SHOCK [None]
  - RESPIRATORY ARREST [None]
